FAERS Safety Report 21784023 (Version 2)
Quarter: 2022Q4

REPORT INFORMATION
  Report Type: Spontaneous
  Country: US (occurrence: US)
  Receive Date: 20221227
  Receipt Date: 20221228
  Transmission Date: 20230112
  Serious: No
  Sender: FDA-Public Use
  Company Number: US-PFIZER INC-202201392150

PATIENT
  Age: 57 Year
  Sex: Female

DRUGS (1)
  1. SIROLIMUS [Suspect]
     Active Substance: SIROLIMUS
     Dosage: 0.5 MG, 3X/DAY
     Route: 048

REACTIONS (4)
  - Swollen tongue [Unknown]
  - Dental discomfort [Unknown]
  - Illness [Unknown]
  - Off label use [Unknown]
